FAERS Safety Report 5941439-2 (Version None)
Quarter: 2008Q4

REPORT INFORMATION
  Report Type: 
  Country: None (occurrence: None)
  Receive Date: 20081031
  Receipt Date: 20081020
  Transmission Date: 20090506
  Serious: Yes (Hospitalization)
  Sender: FDA-Public Use
  Company Number: TPH-00109

PATIENT
  Age: 37 Year
  Sex: Female

DRUGS (1)
  1. TRIQUILAR [Suspect]
     Indication: UTERINE LEIOMYOMA
     Dosage: ORAL
     Route: 048
     Dates: start: 20080501, end: 20081001

REACTIONS (2)
  - BLOOD PRESSURE INCREASED [None]
  - CEREBRAL INFARCTION [None]
